FAERS Safety Report 9652072 (Version 1)
Quarter: 2013Q4

REPORT INFORMATION
  Report Type: Spontaneous
  Country: IR (occurrence: None)
  Receive Date: 20131025
  Receipt Date: 20131025
  Transmission Date: 20140711
  Serious: Yes (Hospitalization)
  Sender: FDA-Public Use
  Company Number: 151899

PATIENT
  Age: 27 Year
  Sex: Female

DRUGS (2)
  1. RIFAMPIN [Suspect]
     Indication: BRUCELLOSIS
     Dosage: ONCE DAILY
  2. RIFAMPIN [Suspect]
     Indication: UTERINE CANCER
     Dosage: ONCE DAILY

REACTIONS (11)
  - Panic attack [None]
  - Disease recurrence [None]
  - Drug interaction [None]
  - Dizziness [None]
  - Hyperhidrosis [None]
  - Tremor [None]
  - Nausea [None]
  - Vomiting [None]
  - Agitation [None]
  - Tachycardia [None]
  - Fear of death [None]
